FAERS Safety Report 23721127 (Version 1)
Quarter: 2024Q2

REPORT INFORMATION
  Report Type: Spontaneous
  Country: US (occurrence: US)
  Receive Date: 20240409
  Receipt Date: 20240409
  Transmission Date: 20240716
  Serious: No
  Sender: FDA-Public Use
  Company Number: US-BEIGENE-BGN-2024-004701

PATIENT

DRUGS (1)
  1. BRUKINSA [Suspect]
     Active Substance: ZANUBRUTINIB
     Indication: Marginal zone lymphoma
     Dosage: UNK
     Route: 048
     Dates: start: 202304

REACTIONS (5)
  - Vision blurred [Unknown]
  - Dizziness [Unknown]
  - Rash papular [Unknown]
  - Constipation [Unknown]
  - Fatigue [Unknown]
